FAERS Safety Report 4983214-1 (Version None)
Quarter: 2006Q2

REPORT INFORMATION
  Report Type: 
  Country: None (occurrence: None)
  Receive Date: 20060426
  Receipt Date: 20060406
  Transmission Date: 20061013
  Serious: Yes (Hospitalization)
  Sender: FDA-Public Use
  Company Number: PHEH2006US04597

PATIENT
  Age: 77 Year
  Sex: Male
  Weight: 86.5 kg

DRUGS (1)
  1. EXJADE [Suspect]
     Indication: BLOOD IRON INCREASED
     Dosage: 1720 MG, QD
     Route: 048
     Dates: start: 20060124

REACTIONS (3)
  - ANAEMIA [None]
  - DEHYDRATION [None]
  - DIARRHOEA [None]
